FAERS Safety Report 12425540 (Version 7)
Quarter: 2016Q4

REPORT INFORMATION
  Report Type: Report from Study
  Country: GB (occurrence: GB)
  Receive Date: 20160601
  Receipt Date: 20161024
  Transmission Date: 20170207
  Serious: Yes (Hospitalization)
  Sender: FDA-Public Use
  Company Number: PHHO2015GB020072

PATIENT
  Age: 3 Year
  Sex: Male

DRUGS (4)
  1. DABRAFENIB [Suspect]
     Active Substance: DABRAFENIB
     Indication: NEOPLASM
     Dosage: 40 MG, BID
     Route: 048
     Dates: start: 20150902, end: 20151228
  2. DABRAFENIB [Suspect]
     Active Substance: DABRAFENIB
     Dosage: 40 MG, BID
     Route: 048
     Dates: start: 20160214, end: 20160520
  3. DABRAFENIB [Suspect]
     Active Substance: DABRAFENIB
     Dosage: UNK
     Route: 048
     Dates: start: 20160523
  4. DABRAFENIB [Suspect]
     Active Substance: DABRAFENIB
     Dosage: 40 MG, BID
     Route: 048
     Dates: start: 20151230, end: 20160212

REACTIONS (4)
  - Pyrexia [Recovered/Resolved]
  - Device related infection [Recovered/Resolved]
  - Varicella [Recovered/Resolved]
  - Blood culture positive [Recovered/Resolved]

NARRATIVE: CASE EVENT DATE: 20151127
